FAERS Safety Report 22341168 (Version 1)
Quarter: 2023Q2

REPORT INFORMATION
  Report Type: Spontaneous
  Country: US (occurrence: US)
  Receive Date: 20230518
  Receipt Date: 20230518
  Transmission Date: 20230722
  Serious: No
  Sender: FDA-Public Use
  Company Number: US-KARYOPHARM-2023KPT001221

PATIENT

DRUGS (14)
  1. XPOVIO [Suspect]
     Active Substance: SELINEXOR
     Indication: Plasma cell myeloma
     Dosage: 40 MG, WEEKLY
     Route: 048
     Dates: start: 202303, end: 20230502
  2. AMLODIPINE [Concomitant]
     Active Substance: AMLODIPINE BESYLATE
  3. ARMODAFINIL [Concomitant]
     Active Substance: ARMODAFINIL
  4. DEXAMETHASONE [Concomitant]
     Active Substance: DEXAMETHASONE
  5. FENTANYL [Concomitant]
     Active Substance: FENTANYL
  6. KLONOPIN [Concomitant]
     Active Substance: CLONAZEPAM
  7. KYPROLIS [Concomitant]
     Active Substance: CARFILZOMIB
  8. LAMOTRIGINE [Concomitant]
     Active Substance: LAMOTRIGINE
  9. LOSARTAN [Concomitant]
     Active Substance: LOSARTAN
  10. METOPROLOL [Concomitant]
     Active Substance: METOPROLOL
  11. ONDANSETRON [Concomitant]
     Active Substance: ONDANSETRON
  12. VELCADE [Concomitant]
     Active Substance: BORTEZOMIB
  13. XARELTO [Concomitant]
     Active Substance: RIVAROXABAN
  14. ZOLOFT [Concomitant]
     Active Substance: SERTRALINE HYDROCHLORIDE

REACTIONS (2)
  - Nausea [Unknown]
  - Platelet count decreased [Unknown]

NARRATIVE: CASE EVENT DATE: 20230501
